FAERS Safety Report 9684299 (Version 1)
Quarter: 2013Q4

REPORT INFORMATION
  Report Type: Spontaneous
  Country: US (occurrence: US)
  Receive Date: 20131112
  Receipt Date: 20131112
  Transmission Date: 20140711
  Serious: No
  Sender: FDA-Public Use
  Company Number: US-B.I. PHARMACEUTICALS,INC./RIDGEFIELD-2013-BI-35011BP

PATIENT
  Sex: Female
  Weight: 75 kg

DRUGS (3)
  1. COMBIVENT [Suspect]
     Indication: ASTHMA
     Dosage: STRENGTH: 18 MCG/ 103 MCG, DAILY DOSE: 144 MCG/ 824 MCG
     Route: 055
     Dates: start: 2001, end: 201308
  2. PROAIR [Concomitant]
     Indication: ASTHMA
     Dates: start: 2000
  3. BUSPAR [Concomitant]
     Indication: ANXIETY
     Dosage: 30 MG
     Route: 048
     Dates: start: 2008

REACTIONS (5)
  - Back pain [Not Recovered/Not Resolved]
  - Hypoaesthesia [Not Recovered/Not Resolved]
  - Dysphonia [Not Recovered/Not Resolved]
  - Laryngitis [Not Recovered/Not Resolved]
  - Off label use [Not Recovered/Not Resolved]
